FAERS Safety Report 12666822 (Version 1)
Quarter: 2016Q3

REPORT INFORMATION
  Report Type: Spontaneous
  Country: US (occurrence: None)
  Receive Date: 20160818
  Receipt Date: 20160818
  Transmission Date: 20161109
  Serious: Yes (Hospitalization)
  Sender: FDA-Public Use
  Company Number: None

PATIENT
  Age: 72 Year
  Sex: Female

DRUGS (20)
  1. ONDANSETRON [Concomitant]
     Active Substance: ONDANSETRON
  2. FISH OIL [Concomitant]
     Active Substance: FISH OIL
  3. DOCUSATE [Concomitant]
     Active Substance: DOCUSATE
  4. GLIMEPIRIDE. [Concomitant]
     Active Substance: GLIMEPIRIDE
  5. XALATAN [Concomitant]
     Active Substance: LATANOPROST
  6. MIRTAZAPINE, 15 MG [Suspect]
     Active Substance: MIRTAZAPINE
     Indication: DEPRESSION
     Route: 048
     Dates: start: 20160601, end: 20160607
  7. DILTIAZEM. [Concomitant]
     Active Substance: DILTIAZEM
  8. LORAZEPAM. [Concomitant]
     Active Substance: LORAZEPAM
  9. PROZAC [Concomitant]
     Active Substance: FLUOXETINE HYDROCHLORIDE
  10. MAG OXIDE [Concomitant]
     Active Substance: MAGNESIUM OXIDE
  11. IRON [Concomitant]
     Active Substance: IRON
  12. LEVOTHYROXINE. [Concomitant]
     Active Substance: LEVOTHYROXINE
  13. ASA [Concomitant]
     Active Substance: ASPIRIN
  14. OMEPRAZOLE. [Concomitant]
     Active Substance: OMEPRAZOLE
  15. OMEPRAZOLE. [Suspect]
     Active Substance: OMEPRAZOLE
  16. ATORVASTATIN [Concomitant]
     Active Substance: ATORVASTATIN
  17. SITAGLIPTIN [Concomitant]
     Active Substance: SITAGLIPTIN
  18. MEMANTINE. [Concomitant]
     Active Substance: MEMANTINE
  19. METOPROLOL. [Concomitant]
     Active Substance: METOPROLOL
  20. DABIGATRAN [Concomitant]
     Active Substance: DABIGATRAN

REACTIONS (2)
  - Lethargy [None]
  - Decreased appetite [None]

NARRATIVE: CASE EVENT DATE: 20160607
